FAERS Safety Report 17496306 (Version 4)
Quarter: 2020Q3

REPORT INFORMATION
  Report Type: Spontaneous
  Country: US (occurrence: US)
  Receive Date: 20200303
  Receipt Date: 20200728
  Transmission Date: 20201102
  Serious: Yes (Life-Threatening, Hospitalization, Other)
  Sender: FDA-Public Use
  Company Number: US-BRISTOL-MYERS SQUIBB COMPANY-BMS-2020-018055

PATIENT
  Age: 13 Year
  Sex: Female
  Weight: 99.02 kg

DRUGS (11)
  1. TADALAFIL. [Suspect]
     Active Substance: TADALAFIL
     Indication: PULMONARY HYPERTENSION
     Dosage: 40 MILLIGRAM, QD
     Route: 065
     Dates: start: 20181017, end: 20200102
  2. LASIX [Concomitant]
     Active Substance: FUROSEMIDE
     Indication: PRODUCT USED FOR UNKNOWN INDICATION
     Route: 065
  3. COUMADIN [Suspect]
     Active Substance: WARFARIN SODIUM
     Indication: PULMONARY HYPERTENSION
     Dosage: 6?7 MG
     Route: 048
     Dates: start: 20181101, end: 20190415
  4. REMODULIN [Suspect]
     Active Substance: TREPROSTINIL
     Indication: PULMONARY ARTERIAL HYPERTENSION
     Dosage: 0.08 MICROGRAM/KILOGRAM
     Route: 058
     Dates: start: 20181116, end: 20200114
  5. TREPROSTINIL. [Suspect]
     Active Substance: TREPROSTINIL
     Dosage: UNK
     Route: 058
     Dates: start: 20181017, end: 20200112
  6. AMBRISENTAN [Suspect]
     Active Substance: AMBRISENTAN
     Dosage: 5 MILLIGRAM, QD
     Route: 048
     Dates: start: 20190313, end: 20190321
  7. AMBRISENTAN [Suspect]
     Active Substance: AMBRISENTAN
     Indication: PULMONARY HYPERTENSION
     Dosage: 10 MILLIGRAM, QD
     Route: 048
     Dates: start: 20181017
  8. REMODULIN [Suspect]
     Active Substance: TREPROSTINIL
     Indication: PULMONARY HYPERTENSION
     Dosage: 0.102 MICROGRAM/KILOGRAM
     Route: 058
     Dates: start: 20190124
  9. ZANTAC [Suspect]
     Active Substance: RANITIDINE HYDROCHLORIDE
     Indication: PRODUCT USED FOR UNKNOWN INDICATION
     Dosage: 150 MILLIGRAM, QD
     Route: 048
     Dates: start: 20181115, end: 20190531
  10. TREPROSTINIL. [Suspect]
     Active Substance: TREPROSTINIL
     Indication: PULMONARY HYPERTENSION
     Dosage: UNK
     Route: 042
     Dates: start: 20181017, end: 20200112
  11. PRILOSEC [Concomitant]
     Active Substance: OMEPRAZOLE MAGNESIUM
     Indication: PRODUCT USED FOR UNKNOWN INDICATION
     Route: 065

REACTIONS (10)
  - Liver function test increased [Not Recovered/Not Resolved]
  - Acute on chronic liver failure [Not Recovered/Not Resolved]
  - Liver disorder [Unknown]
  - Hepatic enzyme increased [Unknown]
  - Hepatorenal syndrome [Unknown]
  - Hypotension [Recovered/Resolved]
  - Toxicity to various agents [Unknown]
  - Ischaemic hepatitis [Recovered/Resolved]
  - Drug-induced liver injury [Not Recovered/Not Resolved]
  - Pulmonary hypertension [Unknown]

NARRATIVE: CASE EVENT DATE: 201812
